APPROVED DRUG PRODUCT: SODIUM POLYSTYRENE SULFONATE
Active Ingredient: SODIUM POLYSTYRENE SULFONATE
Strength: 453.6GM/BOT
Dosage Form/Route: POWDER;ORAL, RECTAL
Application: A090313 | Product #001 | TE Code: AA
Applicant: UPSHER SMITH LABORATORIES LLC
Approved: Dec 21, 2011 | RLD: No | RS: No | Type: RX